FAERS Safety Report 4465476-2 (Version None)
Quarter: 2004Q4

REPORT INFORMATION
  Report Type: 
  Country: None (occurrence: None)
  Receive Date: 20041001
  Receipt Date: 20040928
  Transmission Date: 20050328
  Serious: Yes (Other)
  Sender: FDA-Public Use
  Company Number: 002804

PATIENT
  Sex: Female

DRUGS (4)
  1. MEDROXYPROGESTERONE ACETATE [Suspect]
  2. ESTRADIOL [Suspect]
  3. CYCRIN [Suspect]
  4. ESTRATAB [Suspect]

REACTIONS (1)
  - BREAST CANCER FEMALE [None]
